FAERS Safety Report 23551948 (Version 2)
Quarter: 2024Q1

REPORT INFORMATION
  Report Type: Other
  Country: US (occurrence: None)
  Receive Date: 20240222
  Receipt Date: 20240229
  Transmission Date: 20240409
  Serious: Yes (Other)
  Sender: FDA-Public Use
  Company Number: US-ROCHE-3513201

PATIENT

DRUGS (3)
  1. ATEZOLIZUMAB [Suspect]
     Active Substance: ATEZOLIZUMAB
     Indication: Malignant melanoma
     Route: 065
  2. VEMURAFENIB [Suspect]
     Active Substance: VEMURAFENIB
     Indication: Malignant melanoma
     Route: 065
  3. COBIMETINIB [Suspect]
     Active Substance: COBIMETINIB
     Indication: Malignant melanoma
     Route: 048

REACTIONS (45)
  - Acute kidney injury [Unknown]
  - Anaphylactic reaction [Unknown]
  - Hypertension [Unknown]
  - Hyperglycaemia [Unknown]
  - Alanine aminotransferase increased [Unknown]
  - Hypercalcaemia [Unknown]
  - Rash maculo-papular [Unknown]
  - Pneumonitis [Unknown]
  - Photosensitivity reaction [Unknown]
  - Blood creatine phosphokinase increased [Unknown]
  - Hyponatraemia [Unknown]
  - Hypoxia [Unknown]
  - Pruritus [Unknown]
  - Fatigue [Unknown]
  - Arthralgia [Unknown]
  - Aspartate aminotransferase increased [Unknown]
  - Pyrexia [Unknown]
  - Nausea [Unknown]
  - Lymphocyte count decreased [Unknown]
  - Blood bilirubin increased [Unknown]
  - Myalgia [Unknown]
  - Dehydration [Unknown]
  - Oropharyngeal pain [Unknown]
  - Embolism [Unknown]
  - Muscular weakness [Unknown]
  - Anaemia [Unknown]
  - Neutrophil count decreased [Unknown]
  - White blood cell count decreased [Unknown]
  - Blood alkaline phosphatase increased [Unknown]
  - Hypokalaemia [Unknown]
  - Hypophosphataemia [Unknown]
  - Headache [Unknown]
  - Dyspnoea [Unknown]
  - Decreased appetite [Unknown]
  - Diarrhoea [Unknown]
  - Stomatitis [Unknown]
  - Hypersensitivity [Unknown]
  - Face oedema [Unknown]
  - Infusion related reaction [Unknown]
  - Platelet count decreased [Unknown]
  - Hyperkalaemia [Unknown]
  - Back pain [Unknown]
  - Hypotension [Unknown]
  - Dermatitis acneiform [Unknown]
  - Dry mouth [Unknown]
